FAERS Safety Report 7663916-9 (Version None)
Quarter: 2011Q3

REPORT INFORMATION
  Report Type: 
  Country: None (occurrence: None)
  Receive Date: 20110805
  Receipt Date: 20100809
  Transmission Date: 20111222
  Serious: No
  Sender: FDA-Public Use
  Company Number: US-ABBOTT-10P-163-0663217-00

PATIENT
  Age: 53 Year
  Sex: Female
  Weight: 68.1 kg

DRUGS (2)
  1. LIPITOR [Concomitant]
     Indication: BLOOD CHOLESTEROL INCREASED
  2. NIASPAN [Suspect]
     Indication: BLOOD CHOLESTEROL INCREASED
     Dosage: 500 MG DAILY AT HOUR OF SLEEP
     Route: 048
     Dates: start: 20100804

REACTIONS (1)
  - FLUSHING [None]
